FAERS Safety Report 17852075 (Version 1)
Quarter: 2020Q2

REPORT INFORMATION
  Report Type: Report from Study
  Country: None (occurrence: CA)
  Receive Date: 20200602
  Receipt Date: 20200602
  Transmission Date: 20200714
  Serious: Yes (Other)
  Sender: FDA-Public Use
  Company Number: CA-ABBVIE-20K-028-3424838-00

PATIENT
  Sex: Female

DRUGS (4)
  1. RINVOQ [Suspect]
     Active Substance: UPADACITINIB
     Indication: RHEUMATOID ARTHRITIS
     Route: 048
     Dates: start: 20200404
  2. RINVOQ [Suspect]
     Active Substance: UPADACITINIB
     Indication: RHEUMATOID ARTHRITIS
  3. RELPAX [Concomitant]
     Active Substance: ELETRIPTAN HYDROBROMIDE
     Indication: PRODUCT USED FOR UNKNOWN INDICATION
  4. RELPAX [Concomitant]
     Active Substance: ELETRIPTAN HYDROBROMIDE
     Dosage: 40MG TAKE ONCE A DAY AND IF HAS TO CAN TAKE TWICE A DAY

REACTIONS (10)
  - Middle insomnia [Unknown]
  - Inflammation [Not Recovered/Not Resolved]
  - Poor quality sleep [Unknown]
  - Arthritis [Not Recovered/Not Resolved]
  - Migraine [Unknown]
  - Pain of skin [Unknown]
  - Muscle injury [Unknown]
  - Pain [Unknown]
  - Synovial rupture [Unknown]
  - Arthralgia [Unknown]

NARRATIVE: CASE EVENT DATE: 2020
